FAERS Safety Report 5535115-8 (Version None)
Quarter: 2007Q4

REPORT INFORMATION
  Report Type: 
  Country: None (occurrence: None)
  Receive Date: 20071203
  Receipt Date: 20071128
  Transmission Date: 20080405
  Serious: Yes (Death, Life-Threatening, Hospitalization, Disabling, Other)
  Sender: FDA-Public Use
  Company Number: 2007SP014081

PATIENT
  Age: 71 Year
  Sex: Male

DRUGS (20)
  1. TEMODAL [Suspect]
     Indication: GLIOBLASTOMA MULTIFORME
     Dosage: 150 MG/MD;QD;PO
     Route: 048
     Dates: start: 20061127, end: 20061201
  2. TEMODAL [Suspect]
     Indication: GLIOBLASTOMA MULTIFORME
     Dosage: 150 MG/MD;QD;PO
     Route: 048
     Dates: start: 20070122, end: 20070126
  3. BAKTAR [Concomitant]
  4. KYTRIL [Concomitant]
  5. GLYSENNID [Concomitant]
  6. LAC-B [Concomitant]
  7. ENTERONON-R [Concomitant]
  8. LOPEMIN [Concomitant]
  9. BUFFERIN [Concomitant]
  10. WARFARIN SODIUM [Concomitant]
  11. HARNAL D [Concomitant]
  12. VESICARE [Concomitant]
  13. CEFZON [Concomitant]
  14. LOXONIN [Concomitant]
  15. LOPRESSOR [Concomitant]
  16. ITOROL [Concomitant]
  17. FAMOTIDINE [Concomitant]
  18. BUP-4 [Concomitant]
  19. SEROQUEL [Concomitant]
  20. CRAVIT [Concomitant]

REACTIONS (11)
  - ACUTE RESPIRATORY DISTRESS SYNDROME [None]
  - DRUG TOXICITY [None]
  - DYSPHAGIA [None]
  - INJURY [None]
  - INTRACRANIAL TUMOUR HAEMORRHAGE [None]
  - PNEUMONIA ASPIRATION [None]
  - PNEUMONIA PNEUMOCOCCAL [None]
  - RESPIRATORY FAILURE [None]
  - SHOCK HAEMORRHAGIC [None]
  - SUBARACHNOID HAEMORRHAGE [None]
  - SUBDURAL HAEMATOMA [None]
